FAERS Safety Report 10413409 (Version 2)
Quarter: 2019Q2

REPORT INFORMATION
  Report Type: Spontaneous
  Country: ES (occurrence: ES)
  Receive Date: 20140827
  Receipt Date: 20190624
  Transmission Date: 20190711
  Serious: Yes (Hospitalization)
  Sender: FDA-Public Use
  Company Number: ES-RB PHARMACEUTICALS LIMITED-RB-69925-2014

PATIENT
  Age: 36 Year
  Sex: Female
  Weight: 35 kg

DRUGS (11)
  1. NALOXONE W/OXYCODONE [Concomitant]
     Active Substance: NALOXONE HYDROCHLORIDE\OXYCODONE HYDROCHLORIDE
     Dosage: 80/40 MG/12 HOUR
     Route: 065
  2. PREGABALINE [Concomitant]
     Active Substance: PREGABALIN
     Indication: PRODUCT USED FOR UNKNOWN INDICATION
     Route: 065
  3. MORPHINE [Suspect]
     Active Substance: MORPHINE
     Dosage: 600 MG/DAY
     Route: 048
  4. FENTANYL. [Suspect]
     Active Substance: FENTANYL
     Indication: PAIN
     Dosage: UNK
     Route: 062
  5. BUPRENORPHINE. [Suspect]
     Active Substance: BUPRENORPHINE
     Indication: PAIN
     Dosage: UNK
     Route: 065
  6. NALOXONE W/OXYCODONE [Concomitant]
     Active Substance: NALOXONE HYDROCHLORIDE\OXYCODONE HYDROCHLORIDE
     Indication: PAIN
     Dosage: 160/180 MG/12 HOUR
     Route: 065
  7. MORPHINE [Suspect]
     Active Substance: MORPHINE
     Indication: PAIN
     Dosage: 220 MG/24 HOUR
     Route: 058
  8. CLONAZEPAM. [Concomitant]
     Active Substance: CLONAZEPAM
     Indication: PRODUCT USED FOR UNKNOWN INDICATION
     Route: 065
  9. MORPHINE [Suspect]
     Active Substance: MORPHINE
     Dosage: 4 MG/HOUR
     Route: 042
  10. TRYPTIZOL [Concomitant]
     Active Substance: AMITRIPTYLINE HYDROCHLORIDE
     Indication: PRODUCT USED FOR UNKNOWN INDICATION
     Route: 065
  11. FENTANYL. [Suspect]
     Active Substance: FENTANYL
     Dosage: 21 MG/DAY
     Route: 062

REACTIONS (8)
  - Somnolence [Unknown]
  - Off label use [Unknown]
  - Diarrhoea [Recovered/Resolved]
  - Hyperaesthesia [Recovering/Resolving]
  - Abdominal distension [Recovered/Resolved]
  - Pain [Recovering/Resolving]
  - Constipation [Recovered/Resolved]
  - Drug withdrawal syndrome [Unknown]
